FAERS Safety Report 6972560-8 (Version None)
Quarter: 2010Q3

REPORT INFORMATION
  Report Type: 
  Country: None (occurrence: None)
  Receive Date: 20100907
  Receipt Date: 20100525
  Transmission Date: 20110219
  Serious: Yes (Death, Other)
  Sender: FDA-Public Use
  Company Number: ACO_00983_2010

PATIENT
  Age: 27 Year
  Sex: Female

DRUGS (9)
  1. TIZANIDINE HYDROCHLORIDE [Suspect]
     Indication: PRODUCT USED FOR UNKNOWN INDICATION
     Dosage: (DF)
  2. AZITHROMYCIN [Suspect]
     Indication: UPPER RESPIRATORY TRACT INFECTION
     Dosage: (DF)
  3. BUPROPION HCL [Concomitant]
  4. TRAZODONE HCL [Concomitant]
  5. ZOLPIDEM [Concomitant]
  6. FEXOFENADINE HCL [Concomitant]
  7. TRAMADOL [Concomitant]
  8. IBUPROFEN [Concomitant]
  9. SUMATRIPTAN [Concomitant]

REACTIONS (15)
  - BLOOD POTASSIUM DECREASED [None]
  - BRAIN DEATH [None]
  - BRAIN INJURY [None]
  - CARDIAC ARREST [None]
  - COMA [None]
  - DRUG LEVEL INCREASED [None]
  - HAEMODYNAMIC INSTABILITY [None]
  - HYPOXIC-ISCHAEMIC ENCEPHALOPATHY [None]
  - LOSS OF CONSCIOUSNESS [None]
  - MYOCLONUS [None]
  - SUDDEN DEATH [None]
  - TORSADE DE POINTES [None]
  - UPPER RESPIRATORY TRACT INFECTION [None]
  - VENTRICULAR FIBRILLATION [None]
  - VENTRICULAR TACHYCARDIA [None]
